FAERS Safety Report 21571445 (Version 1)
Quarter: 2022Q4

REPORT INFORMATION
  Report Type: Spontaneous
  Country: JP (occurrence: JP)
  Receive Date: 20221109
  Receipt Date: 20221109
  Transmission Date: 20230113
  Serious: Yes (Other)
  Sender: FDA-Public Use
  Company Number: JP-002147023-NVSJ2022JP100587

PATIENT
  Sex: Female

DRUGS (1)
  1. ZOMETA [Suspect]
     Active Substance: ZOLEDRONIC ACID
     Indication: Acute myeloid leukaemia
     Dosage: 4 MG
     Route: 041
     Dates: start: 201202, end: 201803

REACTIONS (1)
  - Osteonecrosis of jaw [Recovering/Resolving]
